FAERS Safety Report 4414755-3 (Version None)
Quarter: 2004Q3

REPORT INFORMATION
  Report Type: 
  Country: None (occurrence: None)
  Receive Date: 20040804
  Receipt Date: 20030822
  Transmission Date: 20050211
  Serious: No
  Sender: FDA-Public Use
  Company Number: US-BRISTOL-MYERS SQUIBB COMPANY-12363552

PATIENT
  Age: 52 Year
  Sex: Female
  Weight: 82 kg

DRUGS (14)
  1. GLUCOVANCE [Suspect]
     Indication: DIABETES MELLITUS
     Route: 048
     Dates: start: 20030821
  2. VIOXX [Concomitant]
  3. PRILOSEC [Concomitant]
  4. ZANAFLEX [Concomitant]
  5. NEURONTIN [Concomitant]
  6. LEXAPRO [Concomitant]
  7. DEPAKOTE [Concomitant]
  8. SYNTHROID [Concomitant]
  9. DESYREL [Concomitant]
  10. ATARAX [Concomitant]
  11. URISED [Concomitant]
  12. PYRIDIUM PLUS [Concomitant]
  13. ALBUTEROL [Concomitant]
  14. DEMADEX [Concomitant]

REACTIONS (1)
  - DIARRHOEA [None]
